FAERS Safety Report 8861475 (Version 1)
Quarter: 2012Q4

REPORT INFORMATION
  Report Type: Spontaneous
  Country: US (occurrence: None)
  Receive Date: 20121025
  Receipt Date: 20121025
  Transmission Date: 20130627
  Serious: Yes (Death)
  Sender: FDA-Public Use
  Company Number: None

PATIENT
  Age: 75 Year
  Sex: Male

DRUGS (1)
  1. AZITHROMYCIN [Suspect]
     Route: 042
     Dates: start: 20120606, end: 20120610

REACTIONS (3)
  - Torsade de pointes [None]
  - Cardiac arrest [None]
  - Electrocardiogram QT prolonged [None]
